FAERS Safety Report 8320157-X (Version None)
Quarter: 2012Q2

REPORT INFORMATION
  Report Type: 
  Country: None (occurrence: None)
  Receive Date: 20120430
  Receipt Date: 20120419
  Transmission Date: 20120825
  Serious: Yes (Hospitalization)
  Sender: FDA-Public Use
  Company Number: US-BIOGENIDEC-2012BI012250

PATIENT
  Age: 35 Year
  Sex: Male

DRUGS (2)
  1. TYSABRI [Suspect]
     Indication: MULTIPLE SCLEROSIS
     Route: 042
     Dates: start: 20120127
  2. LOVENOX [Concomitant]
     Indication: THROMBOSIS PROPHYLAXIS

REACTIONS (2)
  - ESCHERICHIA URINARY TRACT INFECTION [None]
  - KLEBSIELLA SEPSIS [None]
